FAERS Safety Report 4649012-3 (Version None)
Quarter: 2005Q2

REPORT INFORMATION
  Report Type: 
  Country: None (occurrence: None)
  Receive Date: 20050427
  Receipt Date: 20050415
  Transmission Date: 20051028
  Serious: Yes (Other)
  Sender: FDA-Public Use
  Company Number: HQWYE079518APR05

PATIENT
  Age: 80 Year
  Sex: Male
  Weight: 81.72 kg

DRUGS (8)
  1. CORDARONE [Suspect]
     Indication: ARRHYTHMIA
     Dosage: 200 MG 2X PER 1 DAY, ORAL
     Route: 048
     Dates: start: 20050301, end: 20050101
  2. PACERONE [Suspect]
     Indication: ARRHYTHMIA
     Dosage: 200 MG 2X PER 1 DAY, ORAL
     Route: 048
     Dates: start: 20050101
  3. BUMETANIDE [Concomitant]
  4. COUMADIN [Concomitant]
  5. MEXITIL [Concomitant]
  6. PERIACTIN [Concomitant]
  7. COZAAR [Concomitant]
  8. ZOLOFT (SERTRALINIE HYDROCHLORIDE) [Concomitant]

REACTIONS (6)
  - ANOREXIA [None]
  - CONSTIPATION [None]
  - DIZZINESS [None]
  - DYSGEUSIA [None]
  - HEAD INJURY [None]
  - LOSS OF CONSCIOUSNESS [None]
